FAERS Safety Report 22625626 (Version 1)
Quarter: 2023Q2

REPORT INFORMATION
  Report Type: Spontaneous
  Country: JP (occurrence: JP)
  Receive Date: 20230621
  Receipt Date: 20230621
  Transmission Date: 20230721
  Serious: Yes (Hospitalization, Other)
  Sender: FDA-Public Use
  Company Number: JP-PFIZER INC-PV202300099430

PATIENT
  Age: 98 Year
  Sex: Female
  Weight: 50 kg

DRUGS (3)
  1. IBRANCE [Suspect]
     Active Substance: PALBOCICLIB
     Indication: Breast cancer recurrent
     Dosage: 125 MG, 1X/DAY
     Route: 048
     Dates: start: 20220624, end: 20220721
  2. IBRANCE [Suspect]
     Active Substance: PALBOCICLIB
     Dosage: 100 MG, 2X/DAY
     Route: 048
     Dates: start: 20220812, end: 20230119
  3. LETROZOLE [Concomitant]
     Active Substance: LETROZOLE
     Indication: Breast cancer recurrent
     Dosage: 2.5 (NO UNIT PROVIDED), 1X/DAY
     Route: 048
     Dates: start: 20220624

REACTIONS (3)
  - Interstitial lung disease [Recovered/Resolved]
  - Pleural effusion [Unknown]
  - Pericardial effusion [Unknown]

NARRATIVE: CASE EVENT DATE: 20230119
